FAERS Safety Report 4956055-9 (Version None)
Quarter: 2006Q1

REPORT INFORMATION
  Report Type: 
  Country: None (occurrence: None)
  Receive Date: 20060328
  Receipt Date: 20040901
  Transmission Date: 20060701
  Serious: Yes (Other)
  Sender: FDA-Public Use
  Company Number: DE-MERCK-0603USA04092

PATIENT
  Sex: Male

DRUGS (14)
  1. CRIXIVAN [Suspect]
     Indication: HIV INFECTION
     Route: 048
     Dates: start: 20030401
  2. SUSTIVA [Suspect]
     Indication: HIV INFECTION
     Route: 048
     Dates: start: 20030901
  3. REYATAZ [Suspect]
     Route: 065
     Dates: start: 20040801
  4. VIDEX [Suspect]
     Indication: HIV INFECTION
     Route: 065
     Dates: start: 20030801
  5. ZERIT [Suspect]
     Indication: HIV INFECTION
     Route: 065
     Dates: start: 20010401
  6. ZIDOVUDINE [Suspect]
     Indication: HIV INFECTION
     Route: 065
     Dates: start: 20010301, end: 20010401
  7. ABACAVIR SULFATE [Suspect]
     Indication: HIV INFECTION
     Route: 065
     Dates: start: 20010301
  8. LOPINAVIR [Suspect]
     Indication: HIV INFECTION
     Route: 065
     Dates: start: 20010301
  9. RITONAVIR [Suspect]
     Indication: HIV INFECTION
     Route: 065
     Dates: start: 20010301
  10. TENOFOVIR [Suspect]
     Indication: HIV INFECTION
     Route: 065
     Dates: start: 20030401
  11. NEVIRAPINE [Suspect]
     Indication: HIV INFECTION
     Route: 065
     Dates: start: 20030801
  12. CITALOPRAM HEXAL [Concomitant]
     Route: 065
     Dates: start: 20030401
  13. DOXORUBICIN HYDROCHLORIDE [Concomitant]
     Route: 065
     Dates: start: 20030401
  14. [THERAPY UNSPECIFIED] [Concomitant]
     Route: 065
     Dates: start: 20030901

REACTIONS (15)
  - CRYING [None]
  - DIARRHOEA [None]
  - DRUG ERUPTION [None]
  - ENANTHEMA [None]
  - ERYTHEMA [None]
  - KAPOSI'S SARCOMA [None]
  - NAUSEA [None]
  - NIGHT SWEATS [None]
  - ORAL CANDIDIASIS [None]
  - PARTNER STRESS [None]
  - RASH MACULO-PAPULAR [None]
  - TREATMENT NONCOMPLIANCE [None]
  - VIRAL LOAD INCREASED [None]
  - VOMITING [None]
  - WEIGHT DECREASED [None]
